FAERS Safety Report 20327772 (Version 1)
Quarter: 2022Q1

REPORT INFORMATION
  Report Type: Spontaneous
  Country: US (occurrence: None)
  Receive Date: 20220111
  Receipt Date: 20220111
  Transmission Date: 20220423
  Serious: Yes (Other)
  Sender: FDA-Public Use
  Company Number: None

PATIENT
  Age: 74 Year
  Sex: Male
  Weight: 99 kg

DRUGS (22)
  1. XTANDI [Suspect]
     Active Substance: ENZALUTAMIDE
     Indication: Prostate cancer
     Dosage: FREQUENCY : DAILY;?
     Route: 048
  2. XTANDI [Suspect]
     Active Substance: ENZALUTAMIDE
     Indication: Metastases to bone
  3. Advair HFA 115/21 [Concomitant]
  4. AMLODIPINE BESYLATE [Concomitant]
     Active Substance: AMLODIPINE BESYLATE
  5. ASPIRIN [Concomitant]
     Active Substance: ASPIRIN
  6. CALCIUM CITRATE + D3 [Concomitant]
  7. Centrum for Men [Concomitant]
  8. COENZYME Q10 [Concomitant]
     Active Substance: DIETARY SUPPLEMENT\UBIDECARENONE
  9. Coreg 25 mg [Concomitant]
  10. DIAZEPAM [Concomitant]
     Active Substance: DIAZEPAM
  11. DUTASTERIDE [Concomitant]
     Active Substance: DUTASTERIDE
  12. Eligard 22.5 [Concomitant]
  13. Entresto 97/103 [Concomitant]
  14. EZETIMIBE [Concomitant]
     Active Substance: EZETIMIBE
  15. FLUTICASONE [Concomitant]
     Active Substance: FLUTICASONE
  16. Lanoxin 125 mcg [Concomitant]
  17. LIVALO [Concomitant]
     Active Substance: PITAVASTATIN CALCIUM
  18. METAMUCIL [Concomitant]
     Active Substance: PLANTAGO SEED
  19. Nitrostat 0.4 mg [Concomitant]
  20. TAMSULOSIN [Concomitant]
     Active Substance: TAMSULOSIN
  21. TRAMADOL [Concomitant]
     Active Substance: TRAMADOL
  22. XGEVA [Concomitant]
     Active Substance: DENOSUMAB

REACTIONS (4)
  - Haemoptysis [None]
  - Dyspnoea [None]
  - Pyrexia [None]
  - COVID-19 [None]

NARRATIVE: CASE EVENT DATE: 20220102
